FAERS Safety Report 6902505-8 (Version None)
Quarter: 2010Q3

REPORT INFORMATION
  Report Type: 
  Country: None (occurrence: None)
  Receive Date: 20100730
  Receipt Date: 20100714
  Transmission Date: 20110219
  Serious: Yes (Death, Other)
  Sender: FDA-Public Use
  Company Number: 2010001042

PATIENT
  Age: 81 Year
  Sex: Male
  Weight: 46.1 kg

DRUGS (8)
  1. ERLOTINIB (ERLOTINIB) (TABLET) (ERLOTINIB) [Suspect]
     Indication: NON-SMALL CELL LUNG CANCER
     Dosage: (150 MG, QD), ORAL
     Route: 048
     Dates: start: 20090818, end: 20091015
  2. RABEPRAZOLE SODIUM [Concomitant]
  3. NAIXAN (NAPROXEN SODIUM) [Concomitant]
  4. CELECOXIB [Concomitant]
  5. GLYCEROL 2.6% [Concomitant]
  6. ADRENAL CORTEX EXTRACT [Concomitant]
  7. GLYCEROL 2.6% [Concomitant]
  8. DEXAMETHASONE SODIUM PHOSPHATE [Concomitant]

REACTIONS (5)
  - BLOOD PRESSURE DECREASED [None]
  - CONVULSION [None]
  - MALIGNANT NEOPLASM PROGRESSION [None]
  - NON-SMALL CELL LUNG CANCER STAGE IV [None]
  - PNEUMOCYSTIS JIROVECI PNEUMONIA [None]
